FAERS Safety Report 8558900-7 (Version None)
Quarter: 2012Q3

REPORT INFORMATION
  Report Type: 
  Country: None (occurrence: None)
  Receive Date: 20120801
  Receipt Date: 20120723
  Transmission Date: 20120928
  Serious: No
  Sender: FDA-Public Use
  Company Number: US-009507513-1207USA009565

PATIENT

DRUGS (4)
  1. ONGLYZA [Suspect]
     Dosage: 5 MG, UNK
  2. ONGLYZA [Suspect]
     Dosage: 10 MG, UNK
  3. JANUVIA [Suspect]
     Route: 048
  4. METFORMIN HYDROCHLORIDE [Suspect]

REACTIONS (1)
  - GLYCOSYLATED HAEMOGLOBIN INCREASED [None]
